FAERS Safety Report 9340698 (Version 2)
Quarter: 2013Q3

REPORT INFORMATION
  Report Type: Spontaneous
  Country: GB (occurrence: GB)
  Receive Date: 20130610
  Receipt Date: 20130927
  Transmission Date: 20140515
  Serious: Yes (Hospitalization)
  Sender: FDA-Public Use
  Company Number: GB-GLAXOSMITHKLINE-B0895962A

PATIENT
  Sex: Female

DRUGS (4)
  1. LAMICTAL [Suspect]
  2. KEPPRA [Suspect]
     Indication: EPILEPSY
     Dosage: 250MG PER DAY
  3. KEPPRA [Suspect]
     Indication: EPILEPSY
     Dosage: 500MG PER DAY
  4. CLONAZEPAM [Suspect]

REACTIONS (3)
  - Rash [Recovered/Resolved]
  - Pruritus [Recovered/Resolved]
  - Eye pain [Recovered/Resolved]
